FAERS Safety Report 23527319 (Version 2)
Quarter: 2024Q1

REPORT INFORMATION
  Report Type: Spontaneous
  Country: DE (occurrence: DE)
  Receive Date: 20240215
  Receipt Date: 20240304
  Transmission Date: 20240409
  Serious: Yes (Other)
  Sender: FDA-Public Use
  Company Number: None

PATIENT
  Age: 36 Year
  Sex: Female
  Weight: 70 kg

DRUGS (1)
  1. CYTOTEC [Suspect]
     Active Substance: MISOPROSTOL
     Indication: Labour induction
     Dosage: UNK
     Route: 048
     Dates: start: 20211023, end: 20211025

REACTIONS (5)
  - Maternal exposure during pregnancy [Recovered/Resolved with Sequelae]
  - Anaphylactoid syndrome of pregnancy [Recovered/Resolved with Sequelae]
  - Uterine tachysystole [Recovered/Resolved with Sequelae]
  - Genital injury [Recovered/Resolved with Sequelae]
  - Off label use [Unknown]

NARRATIVE: CASE EVENT DATE: 20211026
